FAERS Safety Report 7200731-4 (Version None)
Quarter: 2010Q4

REPORT INFORMATION
  Report Type: 
  Country: None (occurrence: None)
  Receive Date: 20101228
  Receipt Date: 20101222
  Transmission Date: 20110411
  Serious: Yes (Other)
  Sender: FDA-Public Use
  Company Number: US-AMGEN-USASP2010008964

PATIENT

DRUGS (4)
  1. NPLATE [Suspect]
     Indication: THROMBOCYTOPENIA
     Dosage: 6.8 A?G, UNK
     Dates: start: 20100804, end: 20101119
  2. CORTICOSTEROIDS [Concomitant]
     Indication: THROMBOCYTOPENIA
     Dosage: UNK
  3. PREDNISONE [Concomitant]
     Indication: THROMBOCYTOPENIA
     Dosage: 40 MG, QD
  4. DEXAMETHASONE [Concomitant]
     Dosage: 40 MG, QD
     Route: 042
     Dates: start: 20101201, end: 20101201

REACTIONS (5)
  - BACK DISORDER [None]
  - DRUG INEFFECTIVE [None]
  - PETECHIAE [None]
  - PURPURA [None]
  - THERAPEUTIC RESPONSE DECREASED [None]
